FAERS Safety Report 11044701 (Version 6)
Quarter: 2017Q3

REPORT INFORMATION
  Report Type: Spontaneous
  Country: US (occurrence: US)
  Receive Date: 20150417
  Receipt Date: 20170720
  Transmission Date: 20171127
  Serious: Yes (Other)
  Sender: FDA-Public Use
  Company Number: US-009507513-0907USA02883

PATIENT
  Sex: Male
  Weight: 59.41 kg

DRUGS (3)
  1. FINASTERIDE. [Suspect]
     Active Substance: FINASTERIDE
     Indication: ANDROGENETIC ALOPECIA
     Dosage: 1 MG, QD
     Route: 048
     Dates: start: 20031007, end: 20090715
  2. PROPECIA [Suspect]
     Active Substance: FINASTERIDE
     Indication: ANDROGENETIC ALOPECIA
     Dosage: 1 MG, QD
     Route: 048
     Dates: start: 2001, end: 201211
  3. FINASTERIDE. [Suspect]
     Active Substance: FINASTERIDE
     Indication: ANDROGENETIC ALOPECIA
     Dosage: UNK
     Route: 048
     Dates: start: 20130222, end: 201311

REACTIONS (23)
  - Genitourinary tract neoplasm [Unknown]
  - Barrett^s oesophagus [Unknown]
  - Alopecia [Not Recovered/Not Resolved]
  - Anxiety [Not Recovered/Not Resolved]
  - Drug ineffective [Not Recovered/Not Resolved]
  - Depression [Unknown]
  - Sexual dysfunction [Unknown]
  - Gastrooesophageal reflux disease [Unknown]
  - Brain injury [Unknown]
  - Penis injury [Unknown]
  - Endocrine disorder [Unknown]
  - Heart rate increased [Unknown]
  - Venous operation [Unknown]
  - Ejaculation disorder [Unknown]
  - Self esteem decreased [Unknown]
  - Libido decreased [Not Recovered/Not Resolved]
  - Erectile dysfunction [Not Recovered/Not Resolved]
  - Hypertension [Unknown]
  - Foot deformity [Unknown]
  - Painful ejaculation [Unknown]
  - Hormone level abnormal [Unknown]
  - Genital disorder male [Unknown]
  - Varicocele [Unknown]

NARRATIVE: CASE EVENT DATE: 2003
